FAERS Safety Report 5403701-1 (Version None)
Quarter: 2007Q3

REPORT INFORMATION
  Report Type: 
  Country: None (occurrence: None)
  Receive Date: 20070802
  Receipt Date: 20070501
  Transmission Date: 20080115
  Serious: Yes (Death, Other)
  Sender: FDA-Public Use
  Company Number: US-ASTRAZENECA-2007UW09300

PATIENT
  Age: 81 Year
  Sex: Male
  Weight: 64.4 kg

DRUGS (3)
  1. SEROQUEL [Suspect]
     Indication: PSYCHOTIC DISORDER
     Dosage: ONE DOSE
     Route: 048
     Dates: start: 20060101, end: 20060101
  2. NAMENDA [Concomitant]
  3. COUMADIN [Concomitant]

REACTIONS (6)
  - BLOOD PRESSURE DECREASED [None]
  - DEATH [None]
  - FALL [None]
  - RENAL FAILURE [None]
  - TACHYCARDIA [None]
  - UNRESPONSIVE TO STIMULI [None]
